FAERS Safety Report 8551883-5 (Version None)
Quarter: 2012Q3

REPORT INFORMATION
  Report Type: 
  Country: None (occurrence: None)
  Receive Date: 20120730
  Receipt Date: 20120723
  Transmission Date: 20120928
  Serious: Yes (Hospitalization)
  Sender: FDA-Public Use
  Company Number: PL-BAXTER-2012BAX012533

PATIENT
  Sex: Male
  Weight: 88 kg

DRUGS (11)
  1. ZOCOR [Concomitant]
     Route: 048
  2. PREDNISONE [Concomitant]
     Route: 048
     Dates: start: 20120501
  3. KALIPOZ [Concomitant]
     Dosage: 2 TABLETS
     Route: 048
  4. CYCLOPHOSPHAMIDE [Suspect]
     Route: 042
     Dates: start: 20120615, end: 20120615
  5. FUROSEMIDUM [Concomitant]
     Route: 048
  6. ASPIRIN [Concomitant]
     Route: 048
  7. BISOPROLOL FUMARATE [Concomitant]
     Route: 048
  8. NITRENDYPINA [Concomitant]
     Route: 048
  9. RAMIPRIL [Concomitant]
     Route: 048
  10. ANESTELOC [Concomitant]
     Route: 048
  11. FRAGMIN [Concomitant]
     Route: 058

REACTIONS (3)
  - PYREXIA [None]
  - LACRIMATION INCREASED [None]
  - VISUAL IMPAIRMENT [None]
